FAERS Safety Report 8941323 (Version 2)
Quarter: 2013Q1

REPORT INFORMATION
  Report Type: Spontaneous
  Country: JP (occurrence: JP)
  Receive Date: 20121203
  Receipt Date: 20130228
  Transmission Date: 20140127
  Serious: Yes (Death)
  Sender: FDA-Public Use
  Company Number: JP-ELI_LILLY_AND_COMPANY-JP201209007585

PATIENT
  Age: 69 Year
  Sex: Female

DRUGS (11)
  1. CYMBALTA [Suspect]
     Indication: DEPRESSION
     Dosage: 20 MG, QD
     Route: 048
     Dates: start: 20120730, end: 20120730
  2. REMERON [Concomitant]
     Indication: DEPRESSION
     Dosage: UNK
     Route: 048
     Dates: start: 20100906, end: 20120730
  3. JZOLOFT [Concomitant]
     Indication: DEPRESSION
     Dosage: UNK
     Route: 048
     Dates: start: 20100823, end: 20120730
  4. DEPROMEL [Concomitant]
     Indication: DEPRESSION
     Dosage: UNK
     Route: 048
     Dates: start: 20100816, end: 20120730
  5. MYSLEE [Concomitant]
     Indication: INSOMNIA
     Dosage: UNK MG, UNK
     Route: 048
     Dates: start: 20100906, end: 20120730
  6. BENZALIN [Concomitant]
     Indication: INSOMNIA
     Dosage: UNK MG, UNK
     Route: 048
     Dates: start: 20100709, end: 20120730
  7. CEROCRAL [Concomitant]
     Indication: CEREBRAL CIRCULATORY FAILURE
     Dosage: UNK MG, UNK
     Route: 048
     Dates: start: 20100823, end: 20120730
  8. ETIZOLAM [Concomitant]
     Indication: INSOMNIA
     Dosage: UNK MG, UNK
     Route: 048
     Dates: start: 20100816, end: 20120730
  9. AMLODIPINE [Concomitant]
     Indication: HYPERTENSION
     Dosage: UNK MG, UNK
     Route: 048
     Dates: start: 20101220, end: 20120730
  10. SENNOSIDE                          /00571901/ [Concomitant]
     Indication: CONSTIPATION
     Dosage: UNK MG, UNK
     Route: 048
     Dates: start: 20100927, end: 20120730
  11. LEXOTAN [Concomitant]
     Indication: DEPRESSION
     Dosage: UNK MG, UNK
     Route: 048
     Dates: start: 20120723, end: 20120730

REACTIONS (2)
  - Activation syndrome [Fatal]
  - Completed suicide [Fatal]
